FAERS Safety Report 24019417 (Version 3)
Quarter: 2024Q3

REPORT INFORMATION
  Report Type: Spontaneous
  Country: US (occurrence: US)
  Receive Date: 20240627
  Receipt Date: 20240820
  Transmission Date: 20241017
  Serious: No
  Sender: SANOFI AVENTIS
  Company Number: US-SA-SAC20240624001275

PATIENT
  Age: 67 Year
  Sex: Female

DRUGS (2)
  1. DUPIXENT [Suspect]
     Active Substance: DUPILUMAB
     Indication: Asthma
     Dosage: UNKNOWN LOADING DOSE 1X
     Route: 065
     Dates: start: 202403, end: 202403
  2. DUPIXENT [Suspect]
     Active Substance: DUPILUMAB
     Dosage: 200 MG, QOW
     Route: 065
     Dates: start: 2024, end: 202406

REACTIONS (5)
  - Pain [Recovering/Resolving]
  - Weight increased [Unknown]
  - Abdominal pain upper [Recovering/Resolving]
  - Myalgia [Recovering/Resolving]
  - Arthralgia [Not Recovered/Not Resolved]

NARRATIVE: CASE EVENT DATE: 20240101
